FAERS Safety Report 5498568-X (Version None)
Quarter: 2007Q4

REPORT INFORMATION
  Report Type: 
  Country: None (occurrence: None)
  Receive Date: 20071025
  Receipt Date: 20071025
  Transmission Date: 20080405
  Serious: Yes (Life-Threatening)
  Sender: FDA-Public Use
  Company Number: None

PATIENT
  Sex: Male
  Weight: 92.9874 kg

DRUGS (9)
  1. CAPECITABINE  850MG/M2  D 1-14, [Suspect]
     Indication: COLON CANCER
     Dates: start: 20070404, end: 20070920
  2. OXALIPLATIN [Suspect]
     Indication: COLON CANCER
     Dosage: OXALIPLATIN DAY 1
     Dates: start: 20070404, end: 20070920
  3. CETUXIMAB  250MG/M2  IV WEEKLY [Suspect]
     Indication: COLON CANCER
     Dosage: 1, 8, 15
     Dates: start: 20070404, end: 20070920
  4. LOVASTATIN [Concomitant]
  5. FLAX SEED OIL [Concomitant]
  6. M.V.I. [Concomitant]
  7. VIT D [Concomitant]
  8. LOVENOX [Concomitant]
  9. COMPAZINE [Concomitant]

REACTIONS (2)
  - DEEP VEIN THROMBOSIS [None]
  - PULMONARY EMBOLISM [None]
